FAERS Safety Report 24281467 (Version 1)
Quarter: 2024Q3

REPORT INFORMATION
  Report Type: Report from Study
  Country: FR (occurrence: FR)
  Receive Date: 20240904
  Receipt Date: 20240904
  Transmission Date: 20241017
  Serious: Yes (Other)
  Sender: UCB
  Company Number: FR-UCBSA-2024043633

PATIENT

DRUGS (1)
  1. ROZANOLIXIZUMAB [Suspect]
     Active Substance: ROZANOLIXIZUMAB
     Indication: Product used for unknown indication
     Dosage: UNK
     Dates: end: 202407

REACTIONS (2)
  - Myasthenia gravis [Unknown]
  - Therapeutic product effect decreased [Unknown]
